FAERS Safety Report 11028220 (Version 1)
Quarter: 2015Q2

REPORT INFORMATION
  Report Type: Spontaneous
  Country: US (occurrence: US)
  Receive Date: 20150414
  Receipt Date: 20150414
  Transmission Date: 20150821
  Serious: No
  Sender: FDA-Public Use
  Company Number: US-GLAXOSMITHKLINE-US2015GSK050191

PATIENT
  Sex: Female

DRUGS (2)
  1. TANZEUM [Suspect]
     Active Substance: ALBIGLUTIDE
     Indication: DIABETES MELLITUS
     Dosage: 50 MG, WE
     Route: 042
     Dates: start: 20150201, end: 20150324
  2. TANZEUM [Suspect]
     Active Substance: ALBIGLUTIDE
     Dosage: 30 MG, WE
     Dates: start: 20150324

REACTIONS (6)
  - Sinusitis [Unknown]
  - Oropharyngeal pain [Unknown]
  - Blood glucose increased [Unknown]
  - Pharyngeal erythema [Unknown]
  - Gastrooesophageal reflux disease [Unknown]
  - Bronchitis [Unknown]
